FAERS Safety Report 24809275 (Version 1)
Quarter: 2025Q1

REPORT INFORMATION
  Report Type: Spontaneous
  Country: PH (occurrence: PH)
  Receive Date: 20250106
  Receipt Date: 20250106
  Transmission Date: 20250409
  Serious: Yes (Hospitalization, Other)
  Sender: DAIICHI
  Company Number: PH-AstraZeneca-CH-00774462A

PATIENT
  Sex: Female

DRUGS (2)
  1. TRASTUZUMAB DERUXTECAN [Suspect]
     Active Substance: TRASTUZUMAB DERUXTECAN
     Indication: Product used for unknown indication
     Route: 065
  2. AZITHROMYCIN [Concomitant]
     Active Substance: AZITHROMYCIN
     Indication: Product used for unknown indication
     Route: 065

REACTIONS (5)
  - Interstitial lung disease [Unknown]
  - Tremor [Recovered/Resolved]
  - Malignant pleural effusion [Unknown]
  - Neurotoxicity [Unknown]
  - Vomiting [Recovered/Resolved]
